FAERS Safety Report 7858231-4 (Version None)
Quarter: 2011Q4

REPORT INFORMATION
  Report Type: 
  Country: None (occurrence: None)
  Receive Date: 20111027
  Receipt Date: 20111012
  Transmission Date: 20120403
  Serious: Yes (Hospitalization)
  Sender: FDA-Public Use
  Company Number: US-BAYER-2011-052610

PATIENT
  Age: 36 Year
  Sex: Female
  Weight: 127 kg

DRUGS (10)
  1. PREMARIN [Concomitant]
     Dosage: 0.625 MG, PRN
  2. DARVOCET-N 50 [Concomitant]
     Indication: PAIN
     Dosage: UNK UNK, BID
     Route: 048
  3. EFFEXOR XR [Concomitant]
     Indication: DEPRESSION
     Dosage: 75 MG, QD
     Route: 048
  4. AZITHROMYCIN [Concomitant]
     Dosage: 250 MG, UNK
  5. CIPROFLOXACIN HCL [Concomitant]
     Dosage: 500 MG, UNK
  6. YASMIN [Suspect]
     Indication: ACNE
     Dosage: UNK
     Dates: start: 20020101, end: 20090101
  7. SINGULAIR [Concomitant]
     Indication: MULTIPLE ALLERGIES
     Dosage: 10 MG, QD
     Route: 048
  8. YAZ [Suspect]
     Indication: ACNE
     Dosage: UNK
     Dates: start: 20020101, end: 20090101
  9. DROSPIRENONE AND ETHINYL ESTRADIOL [Suspect]
     Indication: ACNE
     Dosage: UNK
     Dates: start: 20020101, end: 20090101
  10. SINGULAIR [Concomitant]
     Indication: ASTHMA

REACTIONS (3)
  - GALLBLADDER DISORDER [None]
  - CHOLECYSTITIS ACUTE [None]
  - PAIN [None]
